FAERS Safety Report 25526855 (Version 2)
Quarter: 2025Q3

REPORT INFORMATION
  Report Type: Spontaneous
  Country: US (occurrence: US)
  Receive Date: 20250707
  Receipt Date: 20250707
  Transmission Date: 20251020
  Serious: No
  Sender: SANDOZ
  Company Number: US-SANDOZ-SDZ2025US046804

PATIENT
  Sex: Male
  Weight: 58.957 kg

DRUGS (1)
  1. ALBUTEROL SULFATE [Suspect]
     Active Substance: ALBUTEROL SULFATE
     Indication: Chronic obstructive pulmonary disease
     Dosage: UNK, QD
     Route: 065

REACTIONS (4)
  - Weight decreased [Unknown]
  - Malnutrition [Unknown]
  - Product dose omission issue [Unknown]
  - Device delivery system issue [Unknown]
